FAERS Safety Report 17353590 (Version 4)
Quarter: 2024Q3

REPORT INFORMATION
  Report Type: Spontaneous
  Country: US (occurrence: US)
  Receive Date: 20200131
  Receipt Date: 20240701
  Transmission Date: 20241017
  Serious: Yes (Hospitalization, Other)
  Sender: GILEAD
  Company Number: US-GILEAD-2020-0448970

PATIENT
  Age: 41 Year
  Sex: Male

DRUGS (58)
  1. VIREAD [Suspect]
     Active Substance: TENOFOVIR DISOPROXIL FUMARATE
     Indication: HIV infection
     Dosage: UNK
     Route: 048
     Dates: start: 20090130, end: 20140723
  2. VIREAD [Suspect]
     Active Substance: TENOFOVIR DISOPROXIL FUMARATE
     Dosage: UNK
     Route: 048
     Dates: start: 2006, end: 2009
  3. VIREAD [Suspect]
     Active Substance: TENOFOVIR DISOPROXIL FUMARATE
     Dosage: UNK
     Route: 048
     Dates: start: 20090130, end: 20090130
  4. VIREAD [Suspect]
     Active Substance: TENOFOVIR DISOPROXIL FUMARATE
     Dosage: UNK
     Route: 048
     Dates: start: 20090228, end: 20090922
  5. VIREAD [Suspect]
     Active Substance: TENOFOVIR DISOPROXIL FUMARATE
     Dosage: UNK
     Route: 048
     Dates: start: 20091019, end: 20100909
  6. VIREAD [Suspect]
     Active Substance: TENOFOVIR DISOPROXIL FUMARATE
     Dosage: UNK
     Route: 048
     Dates: start: 20101029, end: 20110621
  7. VIREAD [Suspect]
     Active Substance: TENOFOVIR DISOPROXIL FUMARATE
     Dosage: UNK
     Route: 048
     Dates: start: 20110815, end: 20140603
  8. VIREAD [Suspect]
     Active Substance: TENOFOVIR DISOPROXIL FUMARATE
     Dosage: UNK
     Route: 048
     Dates: start: 2002, end: 200406
  9. TRUVADA [Suspect]
     Active Substance: EMTRICITABINE\TENOFOVIR DISOPROXIL FUMARATE
     Indication: HIV infection
     Dosage: UNK
     Route: 048
     Dates: start: 20040710, end: 2006
  10. DESCOVY [Concomitant]
     Active Substance: EMTRICITABINE\TENOFOVIR ALAFENAMIDE FUMARATE
  11. BIKTARVY [Concomitant]
     Active Substance: BICTEGRAVIR SODIUM\EMTRICITABINE\TENOFOVIR ALAFENAMIDE FUMARATE
  12. TIVICAY [Concomitant]
     Active Substance: DOLUTEGRAVIR SODIUM
  13. SINGULAIR [Concomitant]
     Active Substance: MONTELUKAST SODIUM
  14. FORTEO [Concomitant]
     Active Substance: TERIPARATIDE
  15. MECLIZINE HYDROCHLORIDE [Concomitant]
     Active Substance: MECLIZINE HYDROCHLORIDE
  16. TYLENOL EXTRA STRENGTH [Concomitant]
     Active Substance: ACETAMINOPHEN
  17. IOPAMIDOL [Concomitant]
     Active Substance: IOPAMIDOL
  18. OXYCODONE AND ACETAMINOPHEN [Concomitant]
     Active Substance: ACETAMINOPHEN\OXYCODONE HYDROCHLORIDE
  19. FAMCICLOVIR [Concomitant]
     Active Substance: FAMCICLOVIR
  20. METHOCARBAMOL [Concomitant]
     Active Substance: METHOCARBAMOL
  21. ISENTRESS [Concomitant]
     Active Substance: RALTEGRAVIR POTASSIUM
  22. PREZISTA [Concomitant]
     Active Substance: DARUNAVIR ETHANOLATE
  23. NORCO [Concomitant]
     Active Substance: ACETAMINOPHEN\HYDROCODONE BITARTRATE
  24. NORVIR [Concomitant]
     Active Substance: RITONAVIR
  25. TIZANIDINE [Concomitant]
     Active Substance: TIZANIDINE
  26. ATENOLOL [Concomitant]
     Active Substance: ATENOLOL
  27. FERROUS GLUCONATE ARROW [Concomitant]
  28. LYRICA [Concomitant]
     Active Substance: PREGABALIN
  29. ASPIRIN [Concomitant]
     Active Substance: ASPIRIN
  30. CELEBREX [Concomitant]
     Active Substance: CELECOXIB
  31. TRAZODONE [Concomitant]
     Active Substance: TRAZODONE HYDROCHLORIDE
  32. CEPHALEXIN [Concomitant]
     Active Substance: CEPHALEXIN
  33. DOXYCYCLINE [Concomitant]
     Active Substance: DOXYCYCLINE\DOXYCYCLINE HYCLATE
  34. CEFAZOLIN [Concomitant]
     Active Substance: CEFAZOLIN
  35. ESCITALOPRAM [Concomitant]
     Active Substance: ESCITALOPRAM OXALATE
  36. LAMOTRIGINE [Concomitant]
     Active Substance: LAMOTRIGINE
  37. INDOMETHACIN [Concomitant]
     Active Substance: INDOMETHACIN
  38. VANCOMYCIN [Concomitant]
     Active Substance: VANCOMYCIN
  39. CHLORHEXIDINE [Concomitant]
     Active Substance: CHLORHEXIDINE
  40. MAGNESIUM GLUCONATE [Concomitant]
     Active Substance: MAGNESIUM GLUCONATE
  41. POTASSIUM CITRATE [Concomitant]
     Active Substance: POTASSIUM CITRATE
  42. SODIUM BICARBONATE [Concomitant]
     Active Substance: SODIUM BICARBONATE
  43. SOMA COMPOUND [Concomitant]
     Active Substance: ASPIRIN\CARISOPRODOL
  44. VENOFER [Concomitant]
     Active Substance: IRON SUCROSE
  45. INFLUENZA VIRUS VACCINE [Concomitant]
     Active Substance: INFLUENZA VIRUS VACCINE
  46. PNEUMOVAX 23 [Concomitant]
     Active Substance: PNEUMOCOCCAL VACCINE, POLYVALENT 23
  47. EFFEXOR XR [Concomitant]
     Active Substance: VENLAFAXINE HYDROCHLORIDE
  48. SULFAMETHOXAZOLE AND TRIMETHOPRIM [Concomitant]
     Active Substance: SULFAMETHOXAZOLE\TRIMETHOPRIM
  49. GABAPENTIN [Concomitant]
     Active Substance: GABAPENTIN
  50. TRIZIVIR [Concomitant]
     Active Substance: ABACAVIR SULFATE\LAMIVUDINE\ZIDOVUDINE
  51. RANI [Concomitant]
  52. ONDANSETRON HYDROCHLORIDE [Concomitant]
     Active Substance: ONDANSETRON HYDROCHLORIDE
  53. DIVALPROEX SODIUM [Concomitant]
     Active Substance: DIVALPROEX SODIUM
  54. LOPERAMIDE [Concomitant]
     Active Substance: LOPERAMIDE
  55. MEGACE ES [Concomitant]
     Active Substance: MEGESTROL ACETATE
  56. ANDRODERM [Concomitant]
     Active Substance: TESTOSTERONE
  57. DICLOXACILLIN [Concomitant]
     Active Substance: DICLOXACILLIN
  58. MONTELUKAST [Concomitant]
     Active Substance: MONTELUKAST SODIUM

REACTIONS (25)
  - Osteoporosis [Not Recovered/Not Resolved]
  - Hip arthroplasty [Not Recovered/Not Resolved]
  - Hip arthroplasty [Not Recovered/Not Resolved]
  - Hip arthroplasty [Not Recovered/Not Resolved]
  - Hip arthroplasty [Not Recovered/Not Resolved]
  - Multiple fractures [Unknown]
  - Femur fracture [Recovered/Resolved]
  - Osteonecrosis [Not Recovered/Not Resolved]
  - Chronic kidney disease [Not Recovered/Not Resolved]
  - Acute kidney injury [Recovered/Resolved]
  - Fanconi syndrome acquired [Not Recovered/Not Resolved]
  - Renal impairment [Unknown]
  - Osteopenia [Recovered/Resolved]
  - Economic problem [Unknown]
  - Anhedonia [Unknown]
  - Emotional distress [Unknown]
  - Bone loss [Unknown]
  - Bone density decreased [Recovered/Resolved]
  - Anxiety [Unknown]
  - Pain [Unknown]
  - Proteinuria [Recovered/Resolved]
  - Renal tubular acidosis [Recovered/Resolved]
  - Rib fracture [Recovered/Resolved]
  - Hip fracture [Not Recovered/Not Resolved]
  - Hypokalaemia [Recovered/Resolved]

NARRATIVE: CASE EVENT DATE: 20061103
